FAERS Safety Report 9969697 (Version 2)
Quarter: 2014Q1

REPORT INFORMATION
  Report Type: Spontaneous
  Country: GB (occurrence: GB)
  Receive Date: 20140306
  Receipt Date: 20140306
  Transmission Date: 20141002
  Serious: Yes (Hospitalization)
  Sender: FDA-Public Use
  Company Number: GB-ACCORD-021651

PATIENT
  Age: 72 Year
  Sex: Female

DRUGS (14)
  1. LANSOPRAZOLE [Suspect]
     Indication: PRODUCT USED FOR UNKNOWN INDICATION
     Dosage: 30 MG, QD
     Route: 048
     Dates: start: 20131101, end: 20140110
  2. SALBUTAMOL/SALBUTAMOL SULFATE [Concomitant]
     Dosage: 100 MG, AS NECESSARY
  3. RAMIPRIL [Concomitant]
     Dosage: 10 MG, QD
  4. NOVOMIX [Concomitant]
     Dosage: 30 UNK, BID
     Route: 058
  5. ARANESP [Suspect]
     Indication: NEPHROGENIC ANAEMIA
     Dosage: 100 MUG, QWK
     Route: 058
     Dates: start: 20131014
  6. FUROSEMIDE [Concomitant]
     Indication: DYSPNOEA
     Dosage: 80 MG, QMO
     Route: 048
  7. TIOTROPIUM/TIOTROPIUM BROMIDE [Concomitant]
     Dosage: 18 MG, QD
  8. ACETYLSALICYLIC ACID [Concomitant]
     Dosage: 75 MG, QD
     Route: 048
  9. SIMVASTATIN [Concomitant]
     Dosage: 40 MG, UNK
  10. INDAPAMIDE/INDAPAMIDE HEMIHYDRATE [Concomitant]
     Dosage: 2.5 MG, QD
     Route: 048
  11. DOSULEPIN/DOSULEPIN HYDROCHLORIDE [Concomitant]
     Dosage: 75 MG, UNK
     Route: 048
  12. SERETIDE [Concomitant]
     Dosage: UNK UNK, BID
  13. ALLOPURINOL [Suspect]
     Indication: GOUT
     Dosage: 300 MG, QD
     Route: 048
     Dates: start: 20131101, end: 20140110
  14. AMINOPHYLLINE [Concomitant]
     Dosage: 225 MG, BID

REACTIONS (8)
  - Pruritus generalised [Recovering/Resolving]
  - Dermatitis exfoliative [Recovered/Resolved]
  - Wheezing [Unknown]
  - Eczema [Unknown]
  - Drug eruption [Unknown]
  - Lymphocytic infiltration [Unknown]
  - Parakeratosis [Unknown]
  - Skin exfoliation [Unknown]
